FAERS Safety Report 6370669-3 (Version None)
Quarter: 2009Q3

REPORT INFORMATION
  Report Type: 
  Country: None (occurrence: None)
  Receive Date: 20090923
  Receipt Date: 20070514
  Transmission Date: 20100115
  Serious: Yes (Other)
  Sender: FDA-Public Use
  Company Number: US-ASTRAZENECA-2006UW25248

PATIENT
  Age: 527 Month
  Sex: Male
  Weight: 104.3 kg

DRUGS (5)
  1. SEROQUEL [Suspect]
     Indication: SCHIZOPHRENIA
     Dosage: 25-100 MG
     Route: 048
     Dates: start: 20030718, end: 20040513
  2. ABILIFY [Suspect]
     Route: 048
     Dates: start: 20041021
  3. ZYPREXA [Suspect]
     Indication: SCHIZOPHRENIA
     Dosage: 10-20 MG, AT NIGHT
     Route: 048
     Dates: start: 20021024, end: 20041021
  4. GLUCOVANCE [Concomitant]
     Indication: DIABETES MELLITUS
     Dosage: 5/500, TWO TIMES A DAY
     Dates: start: 20051006
  5. ACTOS [Concomitant]
     Indication: DIABETES MELLITUS
     Dates: start: 20051006

REACTIONS (4)
  - DIABETES MELLITUS [None]
  - DIABETES MELLITUS INADEQUATE CONTROL [None]
  - HYPOGLYCAEMIA [None]
  - WEIGHT INCREASED [None]
